FAERS Safety Report 19419513 (Version 15)
Quarter: 2024Q2

REPORT INFORMATION
  Report Type: Report from Study
  Country: BR (occurrence: BR)
  Receive Date: 20210615
  Receipt Date: 20240606
  Transmission Date: 20240716
  Serious: Yes (Other)
  Sender: FDA-Public Use
  Company Number: NVSC2021BR132596

PATIENT
  Age: 76 Year
  Sex: Female

DRUGS (14)
  1. KISQALI [Suspect]
     Active Substance: RIBOCICLIB
     Indication: Breast cancer metastatic
     Dosage: 3 DOSAGE FORM, QD (IN USE, 3 TABLETS, AROUND 27 APR 2021)
     Route: 065
  2. KISQALI [Suspect]
     Active Substance: RIBOCICLIB
     Dosage: 1 DOSAGE FORM (AFTER 1 WEEK OF START DATE)
     Route: 065
  3. KISQALI [Suspect]
     Active Substance: RIBOCICLIB
     Dosage: 2 DOSAGE FORM (AFTER 2 WEEKS OF START DATE)
     Route: 065
  4. KISQALI [Suspect]
     Active Substance: RIBOCICLIB
     Dosage: 3 DOSAGE FORM, QD (200 MG)
     Route: 065
     Dates: start: 20210427
  5. KISQALI [Suspect]
     Active Substance: RIBOCICLIB
     Dosage: UNK
     Route: 065
     Dates: start: 20210427
  6. KISQALI [Suspect]
     Active Substance: RIBOCICLIB
     Dosage: 3 DOSAGE FORM (TABLETS)
     Route: 065
  7. KISQALI [Suspect]
     Active Substance: RIBOCICLIB
     Dosage: UNK
     Route: 065
  8. KISQALI [Suspect]
     Active Substance: RIBOCICLIB
     Dosage: UNK
     Route: 065
     Dates: start: 20210608
  9. KISQALI [Suspect]
     Active Substance: RIBOCICLIB
     Dosage: UNK
     Route: 065
  10. KISQALI [Suspect]
     Active Substance: RIBOCICLIB
     Dosage: UNK, UNKNOWN
     Route: 065
     Dates: start: 2021
  11. KISQALI [Suspect]
     Active Substance: RIBOCICLIB
     Dosage: 4 DOSAGE FORM, QD
     Route: 065
  12. VILDAGLIPTIN [Suspect]
     Active Substance: VILDAGLIPTIN
     Indication: Diabetes mellitus
     Dosage: 50 MG (IN USE)
     Route: 065
  13. LETROZOLE [Suspect]
     Active Substance: LETROZOLE
     Indication: Product used for unknown indication
     Dosage: UNK
     Route: 065
  14. CALCIUM [Concomitant]
     Active Substance: CALCIUM
     Indication: Product used for unknown indication
     Dosage: UNK (IN USE)
     Route: 065

REACTIONS (57)
  - Decreased immune responsiveness [Not Recovered/Not Resolved]
  - Cataract [Unknown]
  - Palpitations [Not Recovered/Not Resolved]
  - Illness [Unknown]
  - Eye pruritus [Recovering/Resolving]
  - Headache [Not Recovered/Not Resolved]
  - Asthenia [Not Recovered/Not Resolved]
  - Dizziness [Not Recovered/Not Resolved]
  - Nausea [Not Recovered/Not Resolved]
  - Taste disorder [Unknown]
  - Hiccups [Unknown]
  - Discouragement [Unknown]
  - Oral discomfort [Unknown]
  - Sluggishness [Recovered/Resolved]
  - Feeling abnormal [Unknown]
  - Insomnia [Unknown]
  - Malaise [Recovered/Resolved]
  - Skin haemorrhage [Unknown]
  - Somnolence [Unknown]
  - Hypersensitivity [Unknown]
  - Wound [Unknown]
  - Lacrimation increased [Unknown]
  - Pigmentation disorder [Not Recovered/Not Resolved]
  - Eye irritation [Unknown]
  - Nasal congestion [Unknown]
  - Rash [Unknown]
  - Fatigue [Unknown]
  - Cough [Unknown]
  - Dry mouth [Unknown]
  - Influenza [Recovered/Resolved]
  - Rash macular [Unknown]
  - Alopecia [Unknown]
  - Dry skin [Unknown]
  - Diarrhoea [Recovered/Resolved]
  - Abdominal pain [Recovered/Resolved]
  - Pruritus [Recovered/Resolved]
  - Pruritus [Not Recovered/Not Resolved]
  - Nasopharyngitis [Unknown]
  - Secretion discharge [Not Recovered/Not Resolved]
  - Burning sensation [Unknown]
  - Muscular weakness [Not Recovered/Not Resolved]
  - Abdominal pain upper [Not Recovered/Not Resolved]
  - Vomiting [Not Recovered/Not Resolved]
  - Spinal pain [Unknown]
  - Pain in extremity [Unknown]
  - Irritability [Unknown]
  - Neck pain [Unknown]
  - Abdominal discomfort [Recovering/Resolving]
  - Viral infection [Recovered/Resolved]
  - COVID-19 [Recovered/Resolved]
  - Neoplasm [Unknown]
  - Osteoporosis [Unknown]
  - Body dysmorphic disorder [Unknown]
  - Drug ineffective [Unknown]
  - Disease progression [Unknown]
  - Diarrhoea [Not Recovered/Not Resolved]
  - Intestinal polyp [Unknown]

NARRATIVE: CASE EVENT DATE: 20210501
